FAERS Safety Report 8666263 (Version 13)
Quarter: 2017Q2

REPORT INFORMATION
  Report Type: Report from Study
  Country: CA (occurrence: CA)
  Receive Date: 20120716
  Receipt Date: 20170502
  Transmission Date: 20170830
  Serious: Yes (Death, Hospitalization, Other)
  Sender: FDA-Public Use
  Company Number: CA-ROCHE-1087475

PATIENT
  Age: 78 Year
  Sex: Female
  Weight: 78.09 kg

DRUGS (28)
  1. RITUXAN [Suspect]
     Active Substance: RITUXIMAB
     Indication: RHEUMATOID ARTHRITIS
     Route: 042
     Dates: start: 20090925
  2. DIPHENHYDRAMINE HCL [Concomitant]
     Active Substance: DIPHENHYDRAMINE HYDROCHLORIDE
     Route: 048
     Dates: start: 20090925
  3. ACETAMINOPHEN. [Concomitant]
     Active Substance: ACETAMINOPHEN
     Route: 048
     Dates: start: 20090925
  4. GRAVOL [Concomitant]
     Active Substance: DIMENHYDRINATE
     Dosage: AS NEEDED
     Route: 065
  5. FOLIC ACID. [Concomitant]
     Active Substance: FOLIC ACID
  6. ACETAMINOPHEN. [Concomitant]
     Active Substance: ACETAMINOPHEN
     Route: 048
     Dates: start: 20090925
  7. PRADAXA [Concomitant]
     Active Substance: DABIGATRAN ETEXILATE MESYLATE
  8. LOSARTAN. [Concomitant]
     Active Substance: LOSARTAN
  9. FENTANYL. [Concomitant]
     Active Substance: FENTANYL
     Route: 065
  10. DIPHENHYDRAMINE HCL [Concomitant]
     Active Substance: DIPHENHYDRAMINE HYDROCHLORIDE
     Route: 048
     Dates: start: 20090925
  11. METOPROLOL. [Concomitant]
     Active Substance: METOPROLOL
  12. TYLENOL ARTHRITIS PAIN [Concomitant]
     Active Substance: ACETAMINOPHEN
  13. SYMBICORT [Concomitant]
     Active Substance: BUDESONIDE\FORMOTEROL FUMARATE DIHYDRATE
  14. MELATONIN [Concomitant]
     Active Substance: MELATONIN
     Dosage: AS NEEDED
     Route: 065
  15. METHOTREXATE. [Suspect]
     Active Substance: METHOTREXATE
     Indication: PRODUCT USED FOR UNKNOWN INDICATION
     Route: 065
  16. CYMBALTA [Concomitant]
     Active Substance: DULOXETINE HYDROCHLORIDE
  17. AVAPRO [Concomitant]
     Active Substance: IRBESARTAN
     Indication: BLOOD PRESSURE MEASUREMENT
  18. METHYLPREDNISOLONE. [Concomitant]
     Active Substance: METHYLPREDNISOLONE
     Route: 042
     Dates: start: 20090925
  19. PREVACID [Concomitant]
     Active Substance: LANSOPRAZOLE
  20. METFORMIN [Concomitant]
     Active Substance: METFORMIN HYDROCHLORIDE
  21. METHYLPREDNISOLONE. [Concomitant]
     Active Substance: METHYLPREDNISOLONE
     Route: 042
     Dates: start: 20090925
  22. PANTOPRAZOLE [Concomitant]
     Active Substance: PANTOPRAZOLE
  23. CICLESONIDE [Concomitant]
     Active Substance: CICLESONIDE
  24. ACTONEL [Concomitant]
     Active Substance: RISEDRONATE SODIUM
     Route: 065
     Dates: start: 20160401
  25. HYDROCORTISONE. [Concomitant]
     Active Substance: HYDROCORTISONE
  26. VITAMIN C [Concomitant]
     Active Substance: ASCORBIC ACID
  27. TYLENOL [Concomitant]
     Active Substance: ACETAMINOPHEN
  28. PREDNISONE. [Concomitant]
     Active Substance: PREDNISONE

REACTIONS (18)
  - Humerus fracture [Unknown]
  - Atrial fibrillation [Unknown]
  - Abdominal pain [Not Recovered/Not Resolved]
  - Bradycardia [Unknown]
  - Dyspnoea [Not Recovered/Not Resolved]
  - Abdominal discomfort [Unknown]
  - Oxygen saturation decreased [Unknown]
  - Productive cough [Not Recovered/Not Resolved]
  - Thrombosis [Recovered/Resolved]
  - Osteoporosis [Unknown]
  - Fall [Unknown]
  - Blood pressure fluctuation [Unknown]
  - Death [Fatal]
  - Pneumonia [Unknown]
  - Infusion related reaction [Unknown]
  - Gastrooesophageal reflux disease [Not Recovered/Not Resolved]
  - Gastritis [Not Recovered/Not Resolved]
  - Blood pressure systolic increased [Unknown]

NARRATIVE: CASE EVENT DATE: 20120613
